FAERS Safety Report 13136186 (Version 6)
Quarter: 2018Q1

REPORT INFORMATION
  Report Type: Spontaneous
  Country: US (occurrence: US)
  Receive Date: 20170121
  Receipt Date: 20180130
  Transmission Date: 20180508
  Serious: Yes (Other)
  Sender: FDA-Public Use
  Company Number: PHEH2017US002316

PATIENT
  Age: 26 Year
  Sex: Female

DRUGS (5)
  1. ZOFRAN ODT [Suspect]
     Active Substance: ONDANSETRON HYDROCHLORIDE
     Indication: PRODUCT USED FOR UNKNOWN INDICATION
     Dosage: 4 MG, UNK
     Route: 048
     Dates: start: 20140822
  2. ONDANSETRON [Suspect]
     Active Substance: ONDANSETRON
     Indication: VOMITING IN PREGNANCY
     Dosage: 4 MG, UNK
     Route: 065
     Dates: start: 20140224, end: 20140408
  3. ONDANSETRON [Suspect]
     Active Substance: ONDANSETRON
     Dosage: 4 MG, UNK
     Route: 065
     Dates: start: 20140408, end: 20140501
  4. ONDANSETRON [Suspect]
     Active Substance: ONDANSETRON
     Dosage: 4 MG, UNK
     Route: 065
     Dates: start: 20140501, end: 20140720
  5. ZOFRAN [Suspect]
     Active Substance: ONDANSETRON HYDROCHLORIDE
     Indication: PRODUCT USED FOR UNKNOWN INDICATION
     Dosage: 4 MG, UNK
     Route: 048
     Dates: start: 20140408, end: 20140709

REACTIONS (11)
  - Oligohydramnios [Unknown]
  - Premature delivery [Unknown]
  - Maternal exposure during pregnancy [Unknown]
  - Injury [Unknown]
  - Bladder obstruction [Unknown]
  - Product use issue [Unknown]
  - Emotional distress [Unknown]
  - Renal cyst [Unknown]
  - Pyelocaliectasis [Unknown]
  - Urinary tract infection [Unknown]
  - Anxiety [Unknown]

NARRATIVE: CASE EVENT DATE: 20140910
